FAERS Safety Report 19757477 (Version 2)
Quarter: 2021Q3

REPORT INFORMATION
  Report Type: Report from Study
  Country: US (occurrence: US)
  Receive Date: 20210827
  Receipt Date: 20210930
  Transmission Date: 20211014
  Serious: No
  Sender: FDA-Public Use
  Company Number: US-IPSEN BIOPHARMACEUTICALS, INC.-2021-20909

PATIENT
  Age: 65 Year
  Sex: Female

DRUGS (17)
  1. LANCET [Concomitant]
     Dosage: 1 DAILY BY OTHER ROUTE, THREE TIMES DAILY
     Route: 050
  2. SYNTHROID [Concomitant]
     Active Substance: LEVOTHYROXINE SODIUM
     Indication: HYPOTHYROIDISM
     Dosage: 50 MCG, ONE TABLET ORAL BY MOUTH DAILY
     Route: 048
     Dates: start: 20210120
  3. SOMATULINE DEPOT [Suspect]
     Active Substance: LANREOTIDE ACETATE
     Indication: ACROMEGALY
     Route: 058
     Dates: start: 202007
  4. CRESTOR [Concomitant]
     Active Substance: ROSUVASTATIN CALCIUM
     Indication: HYPERLIPIDAEMIA
     Dosage: 5 MG (1 TABLET) ORAL BY MOUTH, THREE TIMES A WEEK (MONDAY, WEDNESDAY AND FRIDAY)
     Route: 048
     Dates: start: 20201221
  5. CREON [Concomitant]
     Active Substance: PANCRELIPASE AMYLASE\PANCRELIPASE LIPASE\PANCRELIPASE PROTEASE
     Dosage: 24,000?76,000?120,000 UNIT CAPSULE, 1 CAPSULE ORAL BY MOUTH
     Route: 048
  6. INSULIN [Concomitant]
     Active Substance: INSULIN NOS
     Indication: DIABETES MELLITUS
  7. DOSTINEX [Concomitant]
     Active Substance: CABERGOLINE
     Dosage: NOT REPORTED
  8. SOMATULINE DEPOT [Suspect]
     Active Substance: LANREOTIDE ACETATE
     Dosage: 90 MG/0.3 ML EVERY 30 DAYS
     Route: 058
     Dates: start: 202105, end: 20210825
  9. HYDRODIURIL [Concomitant]
     Active Substance: HYDROCHLOROTHIAZIDE
     Indication: HYPERTENSION
     Dosage: 25 MG TABLET, ONE TABLET DAILY, ORAL BY MOUTH
     Route: 048
     Dates: start: 20210427
  10. JANUVIA [Concomitant]
     Active Substance: SITAGLIPTIN PHOSPHATE
     Indication: TYPE 2 DIABETES MELLITUS
     Dosage: 100MG, ONCE DAILY ORAL BY MOUTH
     Route: 048
     Dates: start: 20210209
  11. SOMATULINE DEPOT [Suspect]
     Active Substance: LANREOTIDE ACETATE
     Dosage: 90 MG/0.3 ML EVERY 30 DAYS
     Route: 058
     Dates: start: 202009
  12. TENORMIN [Concomitant]
     Active Substance: ATENOLOL
     Indication: HYPERTENSION
     Dosage: 50 MG, ORAL BY MOUTH DAILY
     Route: 048
  13. ATIVAN [Concomitant]
     Active Substance: LORAZEPAM
     Indication: ANXIETY
     Dosage: 1 TABLET 1 HOUR BEFORE THE MRI
     Route: 048
     Dates: start: 20200818
  14. CRESTOR [Concomitant]
     Active Substance: ROSUVASTATIN CALCIUM
     Dosage: 5 MG DAILY, ORAL BY MOUTH
     Route: 048
  15. DOSTINEX [Concomitant]
     Active Substance: CABERGOLINE
     Dosage: TWO TIMES A WEEK, HALF TABLET ON TUESDAY AND HALF TABLET ON FRIDAY
     Route: 048
     Dates: start: 20210125, end: 20210726
  16. ADVIL [Concomitant]
     Active Substance: IBUPROFEN
     Route: 048
     Dates: start: 20200713
  17. ATIVAN [Concomitant]
     Active Substance: LORAZEPAM
     Dosage: 1?2 TABLETS PRIOR TO SCANS OR RADIATION TREATMENTS
     Route: 048
     Dates: start: 20210324, end: 20210726

REACTIONS (13)
  - Malaise [Not Recovered/Not Resolved]
  - Myalgia [Recovered/Resolved]
  - Diarrhoea [Recovered/Resolved]
  - Illness [Recovered/Resolved]
  - Arthralgia [Recovered/Resolved]
  - Feeling abnormal [Recovered/Resolved]
  - Headache [Recovered/Resolved]
  - Fatigue [Recovered/Resolved]
  - Drug intolerance [Unknown]
  - Nausea [Recovered/Resolved]
  - Pain [Recovered/Resolved]
  - Abdominal discomfort [Recovered/Resolved]
  - Asthenia [Unknown]

NARRATIVE: CASE EVENT DATE: 2020
